FAERS Safety Report 10185166 (Version 3)
Quarter: 2014Q3

REPORT INFORMATION
  Report Type: Report from Study
  Country: US (occurrence: US)
  Receive Date: 20140521
  Receipt Date: 20140707
  Transmission Date: 20150326
  Serious: Yes (Hospitalization)
  Sender: FDA-Public Use
  Company Number: PHEH2014US009695

PATIENT
  Age: 55 Year
  Sex: Female
  Weight: 84.35 kg

DRUGS (29)
  1. VITAMIN D3 [Concomitant]
     Active Substance: CHOLECALCIFEROL
     Dosage: 1 DF, QD
     Route: 048
  2. GILENYA [Suspect]
     Active Substance: FINGOLIMOD HYDROCHLORIDE
     Indication: MULTIPLE SCLEROSIS
     Dosage: 0.5 MG, QD
     Route: 048
     Dates: start: 20140313, end: 20140509
  3. PREMARIN [Concomitant]
     Active Substance: ESTROGENS, CONJUGATED
  4. LORTAB [Concomitant]
     Active Substance: ACETAMINOPHEN\HYDROCODONE BITARTRATE
  5. VITAMIN C [Concomitant]
     Active Substance: ASCORBIC ACID
     Dosage: 1 DF, BID
     Route: 048
  6. VITAMIN B COMPLEX [Concomitant]
     Active Substance: CYANOCOBALAMIN\DEXPANTHENOL\NIACINAMIDE\PYRIDOXINE HYDROCHLORIDE\RIBOFLAVIN 5^-PHOSPHATE SODIUM\THIAMINE HYDROCHLORIDE\VITAMIN B COMPLEX
     Dosage: 1 DF, QD
     Route: 048
  7. BIFIDOBACTERIUM INFANTIS [Concomitant]
     Dosage: 2 DF, BID
  8. CIPRO [Concomitant]
     Active Substance: CIPROFLOXACIN HYDROCHLORIDE
     Indication: URINARY TRACT INFECTION
  9. PRILOSEC [Concomitant]
     Active Substance: OMEPRAZOLE MAGNESIUM
     Dosage: 1 DF, QD
     Route: 048
  10. ELECTROLYTES NOS [Concomitant]
     Active Substance: ELECTROLYTES NOS
     Route: 048
  11. PROBIOTIC ACIDOPHILUS              /07890501/ [Concomitant]
     Route: 048
  12. AMOXICILLIN AND CLAVULANATE POTASSIUM [Concomitant]
     Active Substance: AMOXICILLIN\CLAVULANATE POTASSIUM
  13. MULTI-VIT [Concomitant]
     Active Substance: VITAMINS
     Route: 048
  14. ZITHROMAX [Concomitant]
     Active Substance: AZITHROMYCIN DIHYDRATE
     Dosage: 1 DF, DAILY
     Route: 048
  15. COPAXONE [Concomitant]
     Active Substance: GLATIRAMER ACETATE
  16. CEFUROXIME AXETIL. [Concomitant]
     Active Substance: CEFUROXIME AXETIL
  17. BIFIDOBACTERIUM ANIMALIS [Concomitant]
     Dosage: 2 DF, BID
     Route: 048
  18. BIFIDOBACTERIUM LONGUM [Concomitant]
     Active Substance: BIFIDOBACTERIUM LONGUM
     Dosage: 2 DF, BID
     Route: 048
  19. EPIPEN [Concomitant]
     Active Substance: EPINEPHRINE
  20. ANTIVERT                           /00007101/ [Concomitant]
     Indication: NAUSEA
     Dosage: 1 DF, QD
     Route: 048
  21. VALTREX [Concomitant]
     Active Substance: VALACYCLOVIR HYDROCHLORIDE
     Dosage: 1000 MG, QD
     Route: 048
  22. PAXIL [Concomitant]
     Active Substance: PAROXETINE HYDROCHLORIDE
     Dosage: 1 DF, QD
     Route: 048
  23. VOLTAREN ^CIBA-GEIGY^ [Concomitant]
     Dosage: 1 DF, TID
  24. FLONASE [Concomitant]
     Active Substance: FLUTICASONE PROPIONATE
     Dosage: 1 DF, BID
  25. LIDODERM [Concomitant]
     Active Substance: LIDOCAINE
  26. ADVIL [Concomitant]
     Active Substance: IBUPROFEN
     Dosage: 1 DF, Q6H
     Route: 048
  27. VALIUM [Concomitant]
     Active Substance: DIAZEPAM
     Indication: MUSCLE SPASMS
     Dosage: 5 MG, QD
     Route: 048
  28. NITROFURANTOIN MONOHYDRATE [Concomitant]
     Active Substance: NITROFURANTOIN MONOHYDRATE
  29. BIFIDOBACTERIUM BIFIDUM [Concomitant]
     Dosage: 2 DF, BID
     Route: 048

REACTIONS (17)
  - Chest discomfort [Unknown]
  - Eye pain [Unknown]
  - Blood glucose increased [Unknown]
  - Urinary retention [Unknown]
  - Back pain [Not Recovered/Not Resolved]
  - Discomfort [Unknown]
  - Sensory disturbance [Unknown]
  - Phantom pain [Unknown]
  - Hyperhidrosis [Unknown]
  - Hypoaesthesia [Unknown]
  - Ventricular extrasystoles [Recovered/Resolved]
  - Oedema peripheral [Unknown]
  - Angina pectoris [Recovered/Resolved]
  - Dizziness [Recovering/Resolving]
  - Palpitations [Unknown]
  - Blood urea increased [Unknown]
  - Bradycardia [Recovering/Resolving]

NARRATIVE: CASE EVENT DATE: 20140508
